FAERS Safety Report 12936238 (Version 1)
Quarter: 2016Q4

REPORT INFORMATION
  Report Type: Spontaneous
  Country: US (occurrence: US)
  Receive Date: 20161112
  Receipt Date: 20161112
  Transmission Date: 20170207
  Serious: No
  Sender: FDA-Public Use
  Company Number: None

PATIENT
  Age: 59 Year
  Sex: Female
  Weight: 89.55 kg

DRUGS (1)
  1. BUPROPRION HCL [Suspect]
     Active Substance: BUPROPION HYDROCHLORIDE
     Indication: MAJOR DEPRESSION
     Dosage: QUANTITY:3 TABLET(S); TWICE A DAY; ORAL?
     Route: 048
     Dates: start: 20161107

REACTIONS (3)
  - Affective disorder [None]
  - Product substitution issue [None]
  - Emotional disorder [None]
